FAERS Safety Report 5084226-2 (Version None)
Quarter: 2006Q3

REPORT INFORMATION
  Report Type: 
  Country: None (occurrence: None)
  Receive Date: 20060821
  Receipt Date: 20060126
  Transmission Date: 20061208
  Serious: Yes (Hospitalization)
  Sender: FDA-Public Use
  Company Number: US-BRISTOL-MYERS SQUIBB COMPANY-13261417

PATIENT
  Age: 70 Year
  Sex: Male
  Weight: 91 kg

DRUGS (1)
  1. TEQUIN [Suspect]

REACTIONS (1)
  - RENAL FAILURE [None]
